FAERS Safety Report 10662394 (Version 1)
Quarter: 2014Q4

REPORT INFORMATION
  Report Type: Spontaneous
  Country: FR (occurrence: FR)
  Receive Date: 20141218
  Receipt Date: 20141218
  Transmission Date: 20150529
  Serious: Yes (Death, Congenital Anomaly)
  Sender: FDA-Public Use
  Company Number: FR-PFIZER INC-2014344449

PATIENT
  Sex: Male
  Weight: 1.54 kg

DRUGS (4)
  1. TAHOR [Suspect]
     Active Substance: ATORVASTATIN CALCIUM
     Indication: HYPERCHOLESTEROLAEMIA
     Dosage: 10 MG, UNK
     Route: 064
  2. XEROQUEL [Suspect]
     Active Substance: QUETIAPINE FUMARATE
     Indication: MENTAL DISORDER
     Dosage: 100 MG, DAILY
     Route: 064
     Dates: end: 20140325
  3. AOTAL [Suspect]
     Active Substance: ACAMPROSATE CALCIUM
     Indication: ALCOHOLISM
     Dosage: UNK
     Route: 064
  4. EPITOMAX [Suspect]
     Active Substance: TOPIRAMATE
     Dosage: 200 MG, DAILY
     Route: 064
     Dates: end: 20130325

REACTIONS (3)
  - Maternal exposure during pregnancy [Not Recovered/Not Resolved]
  - Hydrocephalus [Not Recovered/Not Resolved]
  - Abortion induced [Fatal]

NARRATIVE: CASE EVENT DATE: 20130412
